FAERS Safety Report 7349073-7 (Version None)
Quarter: 2011Q1

REPORT INFORMATION
  Report Type: 
  Country: None (occurrence: None)
  Receive Date: 20110314
  Receipt Date: 20110222
  Transmission Date: 20110831
  Serious: No
  Sender: FDA-Public Use
  Company Number: US-B.I. PHARMACEUTICALS,INC./RIDGEFIELD-2011-BP-06581BP

PATIENT
  Sex: Male

DRUGS (4)
  1. SPIRIVA [Suspect]
     Indication: CHRONIC OBSTRUCTIVE PULMONARY DISEASE
     Dosage: 18 MCG
     Route: 055
     Dates: start: 20110216, end: 20110218
  2. LOTRIL [Concomitant]
     Indication: HYPERTENSION
     Route: 048
  3. GLYPIZIDE [Concomitant]
     Indication: DIABETES MELLITUS
     Route: 048
  4. VICODIN [Concomitant]
     Indication: MUSCULOSKELETAL CHEST PAIN
     Route: 048

REACTIONS (3)
  - MUSCLE SPASMS [None]
  - OEDEMA PERIPHERAL [None]
  - COUGH [None]
